FAERS Safety Report 7067750-2 (Version None)
Quarter: 2010Q4

REPORT INFORMATION
  Report Type: 
  Country: None (occurrence: None)
  Receive Date: 20101028
  Receipt Date: 20091104
  Transmission Date: 20110411
  Serious: No
  Sender: FDA-Public Use
  Company Number: A0791226A

PATIENT
  Age: 80 Year
  Sex: Female

DRUGS (14)
  1. SEREVENT [Suspect]
     Indication: ASTHMA
     Dosage: 50MCG TWICE PER DAY
     Route: 055
     Dates: start: 20040101, end: 20040101
  2. FLOVENT [Concomitant]
  3. NASACORT [Concomitant]
  4. ATARAX [Concomitant]
  5. ALLEGRA [Concomitant]
  6. PROVENTIL [Concomitant]
  7. NEXIUM [Concomitant]
  8. COZAAR [Concomitant]
  9. EVISTA [Concomitant]
     Dosage: 60MG PER DAY
  10. HUMIBID LA [Concomitant]
     Dosage: 600MG TWICE PER DAY
  11. STARLIX [Concomitant]
     Dosage: 60MG THREE TIMES PER DAY
  12. HYDROXYZINE [Concomitant]
     Dosage: 10MG PER DAY
  13. PREMARIN [Concomitant]
     Dosage: 2G TWO TIMES PER WEEK
     Route: 067
  14. PAXIL [Concomitant]
     Dosage: 10MG TWICE PER DAY

REACTIONS (4)
  - ADVERSE EVENT [None]
  - COUGH [None]
  - DRUG INTOLERANCE [None]
  - THROAT IRRITATION [None]
